FAERS Safety Report 19234140 (Version 1)
Quarter: 2021Q2

REPORT INFORMATION
  Report Type: Spontaneous
  Country: US (occurrence: US)
  Receive Date: 20210508
  Receipt Date: 20210508
  Transmission Date: 20210717
  Serious: Yes (Other)
  Sender: FDA-Public Use
  Company Number: US-SA-2021SA148555

PATIENT
  Age: 68 Year
  Sex: Female

DRUGS (1)
  1. ZANTAC [Suspect]
     Active Substance: RANITIDINE HYDROCHLORIDE
     Indication: DYSPEPSIA
     Dosage: 150 MG150 MG, FREQUENCY: OTHER
     Dates: start: 198401, end: 201801

REACTIONS (2)
  - Pulmonary mass [Unknown]
  - Breast cancer [Unknown]

NARRATIVE: CASE EVENT DATE: 20181001
